FAERS Safety Report 7327393-X (Version None)
Quarter: 2011Q1

REPORT INFORMATION
  Report Type: 
  Country: None (occurrence: None)
  Receive Date: 20110302
  Receipt Date: 20110218
  Transmission Date: 20110831
  Serious: Yes (Disabling)
  Sender: FDA-Public Use
  Company Number: US-BAYER-2011-016450

PATIENT
  Sex: Male

DRUGS (2)
  1. CIPRO [Suspect]
     Indication: RESPIRATORY TRACT INFECTION
     Dosage: 500 MG, BID
     Dates: start: 20101210, end: 20101220
  2. UNKNOWN DRUG [Concomitant]
     Indication: PRODUCT USED FOR UNKNOWN INDICATION

REACTIONS (8)
  - MOBILITY DECREASED [None]
  - PRURITUS [None]
  - DIARRHOEA [None]
  - JOINT STABILISATION [None]
  - TENDON DISORDER [None]
  - URTICARIA [None]
  - DYSPNOEA [None]
  - ARTHROPATHY [None]
